FAERS Safety Report 10370676 (Version 1)
Quarter: 2014Q1

REPORT INFORMATION
  Report Type: Spontaneous
  Country: US (occurrence: None)
  Receive Date: 20140306
  Receipt Date: 20140306
  Transmission Date: 20141002
  Serious: Yes (Other)
  Sender: FDA-Public Use
  Company Number: 163-21880-13071534

PATIENT
  Age: 81 Year
  Sex: Female
  Weight: 59.9 kg

DRUGS (4)
  1. REVLIMID [Suspect]
     Indication: CHRONIC LYMPHOCYTIC LEUKAEMIA
     Dosage: 5 MG, 3 IN 7 D, PO
     Route: 048
     Dates: start: 201105
  2. ARANESP (DARBEPOETIN ALFA) [Concomitant]
  3. LOMOTIL [Concomitant]
  4. TYLENOL (PARACETAMOL) [Concomitant]

REACTIONS (2)
  - Thrombosis [None]
  - Diarrhoea [None]
